FAERS Safety Report 8262825-4 (Version None)
Quarter: 2012Q2

REPORT INFORMATION
  Report Type: 
  Country: None (occurrence: None)
  Receive Date: 20120405
  Receipt Date: 20120328
  Transmission Date: 20120825
  Serious: Yes (Other)
  Sender: FDA-Public Use
  Company Number: BE-ASTRAZENECA-2012SE19611

PATIENT
  Age: 58 Year
  Sex: Female

DRUGS (5)
  1. SEROQUEL XR [Suspect]
     Indication: DYSTHYMIC DISORDER
     Route: 048
     Dates: start: 20120316, end: 20120319
  2. INVEGA [Concomitant]
     Dates: start: 20110101
  3. EFFEXOR [Concomitant]
  4. FLUOXETINE [Concomitant]
  5. FORTAL [Concomitant]
     Dosage: TWO TIMES DAILY.

REACTIONS (4)
  - DEPERSONALISATION [None]
  - DYSTHYMIC DISORDER [None]
  - INTENTIONAL DRUG MISUSE [None]
  - GLIOMA [None]
